FAERS Safety Report 15695572 (Version 1)
Quarter: 2018Q4

REPORT INFORMATION
  Report Type: Spontaneous
  Country: US (occurrence: US)
  Receive Date: 20181206
  Receipt Date: 20181206
  Transmission Date: 20190205
  Serious: Yes (Other)
  Sender: FDA-Public Use
  Company Number: US-AMGEN-USASP2018171691

PATIENT
  Age: 76 Year
  Sex: Female

DRUGS (2)
  1. ENBREL [Suspect]
     Active Substance: ETANERCEPT
     Indication: RHEUMATOID ARTHRITIS
     Dosage: UNK
     Route: 065
     Dates: start: 1999, end: 201811
  2. ENBREL [Suspect]
     Active Substance: ETANERCEPT
     Dosage: 25 MG, BID
     Route: 065
     Dates: start: 201811

REACTIONS (5)
  - Wrong technique in product usage process [Unknown]
  - Aortic valve replacement [Unknown]
  - Cardiac murmur [Unknown]
  - Catheterisation cardiac [Unknown]
  - Injection site pain [Unknown]

NARRATIVE: CASE EVENT DATE: 201802
